FAERS Safety Report 13263129 (Version 2)
Quarter: 2019Q1

REPORT INFORMATION
  Report Type: Spontaneous
  Country: GB (occurrence: GB)
  Receive Date: 20170223
  Receipt Date: 20190222
  Transmission Date: 20190417
  Serious: Yes (Other)
  Sender: FDA-Public Use
  Company Number: GB-ACCORD-048326

PATIENT
  Age: 16 Year
  Sex: Male
  Weight: 61.23 kg

DRUGS (6)
  1. ZOLMITRIPTAN. [Concomitant]
     Active Substance: ZOLMITRIPTAN
  2. LEMSIP COLD + FLU [Concomitant]
     Active Substance: ACETAMINOPHEN\PHENYLEPHRINE
  3. CODEINE PHOSPHATE/PARACETAMOL [Concomitant]
     Dosage: 30/500 MILLIGRAMS.
  4. PROCHLORPEMAZINE [Concomitant]
  5. TOPIRAMATE. [Suspect]
     Active Substance: TOPIRAMATE
     Indication: MIGRAINE PROPHYLAXIS
     Route: 048
     Dates: start: 20170117, end: 20170127
  6. IBUPROFEN. [Concomitant]
     Active Substance: IBUPROFEN

REACTIONS (10)
  - Oropharyngeal pain [Not Recovered/Not Resolved]
  - Influenza [Not Recovered/Not Resolved]
  - Sneezing [Not Recovered/Not Resolved]
  - Pain [Not Recovered/Not Resolved]
  - Epistaxis [Not Recovered/Not Resolved]
  - Discomfort [Not Recovered/Not Resolved]
  - Nasal congestion [Not Recovered/Not Resolved]
  - Depression [Not Recovered/Not Resolved]
  - Decreased appetite [Not Recovered/Not Resolved]
  - Nasal inflammation [Not Recovered/Not Resolved]

NARRATIVE: CASE EVENT DATE: 20170120
